FAERS Safety Report 11782815 (Version 2)
Quarter: 2015Q4

REPORT INFORMATION
  Report Type: Report from Study
  Country: US (occurrence: US)
  Receive Date: 20151127
  Receipt Date: 20151203
  Transmission Date: 20160305
  Serious: Yes (Hospitalization)
  Sender: FDA-Public Use
  Company Number: US-BIOGENIDEC-2015BI156452

PATIENT
  Sex: Female

DRUGS (1)
  1. TECFIDERA [Suspect]
     Active Substance: DIMETHYL FUMARATE
     Indication: MULTIPLE SCLEROSIS
     Dates: start: 20140521, end: 20150824

REACTIONS (9)
  - Pulmonary embolism [Unknown]
  - White blood cell count decreased [Not Recovered/Not Resolved]
  - Decubitus ulcer [Recovered/Resolved]
  - Decreased immune responsiveness [Unknown]
  - Asthenia [Unknown]
  - Muscle atrophy [Recovered/Resolved]
  - Urinary tract infection [Unknown]
  - Myalgia [Recovered/Resolved]
  - Sepsis [Unknown]
